FAERS Safety Report 5462476-0 (Version None)
Quarter: 2007Q3

REPORT INFORMATION
  Report Type: 
  Country: None (occurrence: None)
  Receive Date: 20070801
  Receipt Date: 20070404
  Transmission Date: 20080115
  Serious: Yes (Other)
  Sender: FDA-Public Use
  Company Number: 2007027629

PATIENT
  Sex: Male

DRUGS (1)
  1. AZULFIDINE [Suspect]
     Indication: COLITIS ULCERATIVE
     Dosage: 1500 MG (500 MG, 3 IN 1 D)
     Dates: start: 20070301

REACTIONS (2)
  - DEAFNESS [None]
  - VERTIGO [None]
